FAERS Safety Report 7521934-5 (Version None)
Quarter: 2011Q2

REPORT INFORMATION
  Report Type: 
  Country: None (occurrence: None)
  Receive Date: 20110603
  Receipt Date: 20110520
  Transmission Date: 20111010
  Serious: Yes (Other)
  Sender: FDA-Public Use
  Company Number: US-ELI_LILLY_AND_COMPANY-US201105006314

PATIENT
  Sex: Male

DRUGS (3)
  1. FORTEO [Suspect]
     Indication: OSTEOPOROSIS
     Dosage: 20 UG, QD
     Route: 065
     Dates: start: 20110404, end: 20110428
  2. VITAMINS                           /90003601/ [Concomitant]
     Dosage: UNK, UNKNOWN
     Route: 065
  3. QUINAPRIL [Concomitant]
     Dosage: 2 MG, QD
     Route: 065

REACTIONS (1)
  - MULTIPLE MYELOMA [None]
